FAERS Safety Report 12844953 (Version 2)
Quarter: 2016Q4

REPORT INFORMATION
  Report Type: Report from Study
  Country: None (occurrence: US)
  Receive Date: 20161013
  Receipt Date: 20161202
  Transmission Date: 20170207
  Serious: Yes (Hospitalization)
  Sender: FDA-Public Use
  Company Number: US-ABBVIE-16K-163-1747485-00

PATIENT
  Sex: Female
  Weight: 52.21 kg

DRUGS (6)
  1. CIPROFLOXACIN. [Suspect]
     Active Substance: CIPROFLOXACIN
     Indication: PYELONEPHRITIS
     Route: 048
     Dates: start: 201607, end: 201607
  2. WELLBUTRIN [Concomitant]
     Active Substance: BUPROPION HYDROCHLORIDE
     Indication: DEPRESSION
  3. OMNICEF [Suspect]
     Active Substance: CEFDINIR
     Indication: PYELONEPHRITIS
     Route: 065
     Dates: start: 201607, end: 201607
  4. HUMIRA [Suspect]
     Active Substance: ADALIMUMAB
     Indication: PSORIASIS
     Route: 058
     Dates: start: 20160311, end: 201606
  5. COGENTIN [Concomitant]
     Active Substance: BENZTROPINE MESYLATE
     Indication: MOVEMENT DISORDER
  6. LOESTRIN NOS [Concomitant]
     Active Substance: ETHINYL ESTRADIOL\NORETHINDRONE ACETATE
     Indication: POLYCYSTIC OVARIES

REACTIONS (8)
  - Adverse drug reaction [Unknown]
  - Urinary tract infection [Recovered/Resolved]
  - Cystitis interstitial [Recovering/Resolving]
  - Blood urine present [Recovered/Resolved]
  - Infection susceptibility increased [Not Recovered/Not Resolved]
  - Pyelonephritis [Recovered/Resolved]
  - Urticaria [Recovered/Resolved]
  - Respiratory tract infection [Recovered/Resolved]

NARRATIVE: CASE EVENT DATE: 2016
